FAERS Safety Report 8361560-1 (Version None)
Quarter: 2012Q2

REPORT INFORMATION
  Report Type: 
  Country: None (occurrence: None)
  Receive Date: 20120515
  Receipt Date: 20120508
  Transmission Date: 20120825
  Serious: Yes (Other)
  Sender: FDA-Public Use
  Company Number: DK-TEVA-324203ISR

PATIENT
  Sex: Male
  Weight: 86 kg

DRUGS (8)
  1. METHOTREXATE [Suspect]
     Indication: RHEUMATOID ARTHRITIS
     Dosage: STRENGTH: 2,5 MG
     Route: 048
     Dates: start: 20041020, end: 20101213
  2. PANODIL RETARD [Concomitant]
     Dosage: 2 GRAM;
  3. PREDNISOLONE [Concomitant]
     Dosage: 5 MILLIGRAM;
  4. ENBREL [Suspect]
     Indication: RHEUMATOID ARTHRITIS
     Dosage: ON PAUSE
     Dates: start: 20030925, end: 20110517
  5. MIRTAZAPINE [Concomitant]
     Dosage: 30 MILLIGRAM;
  6. FOLIMET [Concomitant]
     Dosage: FOR SEVERAL YEARS
  7. OXAZEPAM [Concomitant]
     Dosage: 45 MILLIGRAM;
  8. TRAMADOL HYDROCHLORIDE [Concomitant]
     Dosage: 200 MILLIGRAM;

REACTIONS (2)
  - RENAL CELL CARCINOMA [None]
  - PLEURAL MESOTHELIOMA [None]
